FAERS Safety Report 10016736 (Version 1)
Quarter: 2014Q1

REPORT INFORMATION
  Report Type: Spontaneous
  Country: DE (occurrence: DE)
  Receive Date: 20140318
  Receipt Date: 20140318
  Transmission Date: 20141002
  Serious: Yes (Other)
  Sender: FDA-Public Use
  Company Number: PHHY2014DE030483

PATIENT
  Age: 67 Year
  Sex: Female

DRUGS (3)
  1. DAFIRO HCT [Suspect]
     Dosage: 1 DF, (160 MG VALS, 10 MG AMLO AND 25 MG HYDR)
     Dates: start: 20140306
  2. ASS [Concomitant]
     Dosage: UNK UKN, UNK
  3. L THYROXIN [Concomitant]
     Dosage: UNK UKN, UNK

REACTIONS (5)
  - Angina pectoris [Unknown]
  - Gait disturbance [Unknown]
  - Blood pressure fluctuation [Unknown]
  - Dizziness [Unknown]
  - Fatigue [Unknown]
